FAERS Safety Report 4509942-X (Version None)
Quarter: 2004Q4

REPORT INFORMATION
  Report Type: 
  Country: None (occurrence: None)
  Receive Date: 20041119
  Receipt Date: 20041029
  Transmission Date: 20050328
  Serious: No
  Sender: FDA-Public Use
  Company Number: JP_040904382

PATIENT
  Age: 25 Year
  Sex: Female

DRUGS (3)
  1. ZYPREXA [Suspect]
     Indication: SCHIZOPHRENIA
     Dosage: 5 MG DAY
     Dates: start: 20040821, end: 20040830
  2. DEPAS (ETIZOLAM) [Concomitant]
  3. ROHYPNOL (FLUNITRAZEPAM) [Concomitant]

REACTIONS (2)
  - BLOOD THYROID STIMULATING HORMONE DECREASED [None]
  - HYPERTHYROIDISM [None]
